FAERS Safety Report 11818671 (Version 1)
Quarter: 2015Q4

REPORT INFORMATION
  Report Type: Spontaneous
  Country: US (occurrence: None)
  Receive Date: 20151209
  Receipt Date: 20151209
  Transmission Date: 20160305
  Serious: Yes (Hospitalization)
  Sender: FDA-Public Use
  Company Number: None

PATIENT
  Age: 93 Year
  Sex: Female
  Weight: 44 kg

DRUGS (5)
  1. ASPIRIN. [Concomitant]
     Active Substance: ASPIRIN
  2. NTG [Concomitant]
     Active Substance: NITROGLYCERIN
  3. PRINIVIL [Concomitant]
     Active Substance: LISINOPRIL
  4. BACTRIM DS [Suspect]
     Active Substance: SULFAMETHOXAZOLE\TRIMETHOPRIM
     Indication: URINARY TRACT INFECTION
     Route: 048
  5. BUMEX [Concomitant]
     Active Substance: BUMETANIDE

REACTIONS (1)
  - Drug eruption [None]

NARRATIVE: CASE EVENT DATE: 20150504
